FAERS Safety Report 8479980-3 (Version None)
Quarter: 2012Q2

REPORT INFORMATION
  Report Type: 
  Country: None (occurrence: None)
  Receive Date: 20120615
  Receipt Date: 20120604
  Transmission Date: 20120825
  Serious: Yes (Other)
  Sender: FDA-Public Use
  Company Number: DSA_57818_2012

PATIENT

DRUGS (4)
  1. BEVACIZUMAB [Suspect]
     Indication: NASOPHARYNGEAL CANCER
     Dosage: (15MG/M2) ; (15MG/M2; EVERY THREE WEEKS)
  2. THERAPEUTIC RADIOPHARMACEUTICALS [Suspect]
     Indication: NASOPHARYNGEAL CANCER
     Dosage: (DF)
  3. FLUOROURACIL [Suspect]
     Indication: NASOPHARYNGEAL CANCER
     Dosage: (1000 MG/M2; INTRAVENOUS (NOT OTHERWISE SPECIFIED))
     Route: 042
  4. CISPLATIN [Suspect]
     Indication: NASOPHARYNGEAL CANCER
     Dosage: (100MG/M2) ; (80MG/M2; EVERY THREE WEEKS)

REACTIONS (1)
  - LEUKOPENIA [None]
